FAERS Safety Report 6549775-6 (Version None)
Quarter: 2010Q1

REPORT INFORMATION
  Report Type: 
  Country: None (occurrence: None)
  Receive Date: 20100125
  Receipt Date: 20100114
  Transmission Date: 20100710
  Serious: Yes (Other)
  Sender: FDA-Public Use
  Company Number: IE-JNJFOC-20091101260

PATIENT
  Sex: Female
  Weight: 99 kg

DRUGS (7)
  1. REMICADE [Suspect]
     Indication: RHEUMATOID ARTHRITIS
     Dosage: RECEIVED 7 DOSES TOTAL
     Route: 042
     Dates: start: 20090421, end: 20091102
  2. REMICADE [Suspect]
     Route: 042
     Dates: start: 20090421, end: 20091102
  3. TELMISARTAN [Concomitant]
     Indication: HYPERTENSION
  4. ESOMEPRAZOLE [Concomitant]
     Indication: DYSPEPSIA
  5. CHLORPHENIRAMINE MALEATE [Concomitant]
     Indication: PREMEDICATION
     Route: 048
  6. HYDROCORTISONE [Concomitant]
     Indication: PREMEDICATION
     Route: 042
  7. PARACETAMOL [Concomitant]
     Indication: PREMEDICATION
     Route: 048

REACTIONS (8)
  - BRONCHOSPASM [None]
  - CHEST DISCOMFORT [None]
  - FEELING HOT [None]
  - INFUSION RELATED REACTION [None]
  - MALAISE [None]
  - PYREXIA [None]
  - RASH [None]
  - URTICARIA [None]
